FAERS Safety Report 10021283 (Version 12)
Quarter: 2020Q1

REPORT INFORMATION
  Report Type: Report from Study
  Country: CA (occurrence: CA)
  Receive Date: 20140319
  Receipt Date: 20200205
  Transmission Date: 20200409
  Serious: Yes (Hospitalization, Other)
  Sender: FDA-Public Use
  Company Number: PHHY2014CA031740

PATIENT
  Age: 67 Year
  Sex: Male

DRUGS (2)
  1. TASIGNA [Suspect]
     Active Substance: NILOTINIB
     Indication: CHRONIC MYELOID LEUKAEMIA
     Dosage: 300 MG, BID
     Route: 048
     Dates: start: 20140210
  2. TASIGNA [Suspect]
     Active Substance: NILOTINIB
     Dosage: 150 MG, TID
     Route: 048

REACTIONS (13)
  - Blood pressure decreased [Unknown]
  - Blood cholesterol increased [Unknown]
  - Pruritus [Recovered/Resolved]
  - Intentional underdose [Unknown]
  - Heart rate increased [Unknown]
  - Arrhythmia [Unknown]
  - Headache [Recovered/Resolved]
  - Dry skin [Unknown]
  - Atrial flutter [Unknown]
  - Back pain [Unknown]
  - Dyspnoea [Unknown]
  - Phlebitis [Unknown]
  - Skin sensitisation [Recovered/Resolved]

NARRATIVE: CASE EVENT DATE: 201606
